FAERS Safety Report 11394591 (Version 1)
Quarter: 2015Q3

REPORT INFORMATION
  Report Type: Spontaneous
  Country: US (occurrence: US)
  Receive Date: 20150819
  Receipt Date: 20150819
  Transmission Date: 20151125
  Serious: Yes (Other)
  Sender: FDA-Public Use
  Company Number: US-TEVA-587268ACC

PATIENT
  Age: 39 Year
  Sex: Female
  Weight: 81.27 kg

DRUGS (1)
  1. PARAGARD T 380A [Suspect]
     Active Substance: COPPER
     Indication: CONTRACEPTION
     Route: 015
     Dates: start: 20140414

REACTIONS (1)
  - Device dislocation [Recovering/Resolving]

NARRATIVE: CASE EVENT DATE: 20150728
